FAERS Safety Report 10668040 (Version 1)
Quarter: 2014Q4

REPORT INFORMATION
  Report Type: Spontaneous
  Country: FR (occurrence: None)
  Receive Date: 20141218
  Receipt Date: 20141218
  Transmission Date: 20150529
  Serious: Yes (Other)
  Sender: FDA-Public Use
  Company Number: NGX_02616_2014

PATIENT
  Sex: Female
  Weight: 90 kg

DRUGS (6)
  1. LAROXYL [Concomitant]
     Active Substance: AMITRIPTYLINE
  2. LYRICA [Concomitant]
     Active Substance: PREGABALIN
  3. IXPRIM [Concomitant]
     Active Substance: ACETAMINOPHEN\TRAMADOL HYDROCHLORIDE
  4. QUTENZA [Suspect]
     Active Substance: CAPSAICIN
     Indication: AMPUTATION STUMP PAIN
     Dosage: ([CUTANEOUS PATCH, DF] TRANSDERMAL)
     Route: 062
     Dates: start: 2014, end: 2014
  5. OMEPRAZOLE. [Concomitant]
     Active Substance: OMEPRAZOLE
  6. CEBUTID [Concomitant]
     Active Substance: FLURBIPROFEN

REACTIONS (4)
  - Application site pain [None]
  - Application site erythema [None]
  - Drug ineffective [None]
  - Phantom pain [None]

NARRATIVE: CASE EVENT DATE: 2014
